FAERS Safety Report 6500023-2 (Version None)
Quarter: 2009Q4

REPORT INFORMATION
  Report Type: 
  Country: None (occurrence: None)
  Receive Date: 20091211
  Receipt Date: 20091211
  Transmission Date: 20100525
  Serious: Yes (Life-Threatening, Other)
  Sender: FDA-Public Use
  Company Number: None

PATIENT
  Sex: Female
  Weight: 61.2356 kg

DRUGS (1)
  1. CEFPROZIL [Suspect]
     Indication: STAPHYLOCOCCAL INFECTION
     Dosage: 1 TABLET TWICE DAILY
     Dates: start: 20090820

REACTIONS (2)
  - BLOOD PRESSURE INCREASED [None]
  - TRANSIENT ISCHAEMIC ATTACK [None]
